FAERS Safety Report 15226343 (Version 1)
Quarter: 2018Q3

REPORT INFORMATION
  Report Type: Spontaneous
  Country: US (occurrence: US)
  Receive Date: 20180801
  Receipt Date: 20180801
  Transmission Date: 20181010
  Serious: Yes (Other)
  Sender: FDA-Public Use
  Company Number: US-BAUSCH-BL-2018-020260

PATIENT
  Age: 44 Year
  Sex: Female
  Weight: 61.29 kg

DRUGS (4)
  1. APRISO [Suspect]
     Active Substance: MESALAMINE
     Indication: CROHN^S DISEASE
     Route: 048
     Dates: start: 2017, end: 201806
  2. APRISO [Suspect]
     Active Substance: MESALAMINE
     Indication: OFF LABEL USE
     Dosage: STARTED TAKING SMALLER AND SMALLER DOSES
     Route: 048
     Dates: start: 201806, end: 20180709
  3. BUDESONIDE. [Concomitant]
     Active Substance: BUDESONIDE
     Indication: PRODUCT USED FOR UNKNOWN INDICATION
  4. PREDNISONE. [Concomitant]
     Active Substance: PREDNISONE
     Indication: PRODUCT USED FOR UNKNOWN INDICATION

REACTIONS (6)
  - Insurance issue [Not Recovered/Not Resolved]
  - Off label use [Recovered/Resolved]
  - Crohn^s disease [Not Recovered/Not Resolved]
  - Malaise [Not Recovered/Not Resolved]
  - Nausea [Not Recovered/Not Resolved]
  - Injury [Not Recovered/Not Resolved]

NARRATIVE: CASE EVENT DATE: 2017
